FAERS Safety Report 5145491-6 (Version None)
Quarter: 2006Q4

REPORT INFORMATION
  Report Type: 
  Country: None (occurrence: None)
  Receive Date: 20061102
  Receipt Date: 20061023
  Transmission Date: 20070319
  Serious: Yes (Hospitalization)
  Sender: FDA-Public Use
  Company Number: GXKR2006JP06668

PATIENT
  Age: 83 Year
  Sex: Female

DRUGS (5)
  1. PAROXETINE [Suspect]
     Indication: DEPRESSION
     Dosage: 20 MG ONCE ORAL
     Route: 048
     Dates: start: 20050711, end: 20050711
  2. OMEPRAZOLE [Concomitant]
  3. BENIDIPINE HYDROCHLORIDE [Concomitant]
  4. ALFACALCIDOL [Concomitant]
  5. RISEDRONATE SODIUM [Concomitant]

REACTIONS (2)
  - FANCONI SYNDROME ACQUIRED [None]
  - INAPPROPRIATE ANTIDIURETIC HORMONE SECRETION [None]
